FAERS Safety Report 6409731-5 (Version None)
Quarter: 2009Q4

REPORT INFORMATION
  Report Type: 
  Country: None (occurrence: None)
  Receive Date: 20091022
  Receipt Date: 20091009
  Transmission Date: 20100525
  Serious: Yes (Other)
  Sender: FDA-Public Use
  Company Number: PHHY2009IN43872

PATIENT
  Age: 14 Year
  Sex: Male

DRUGS (3)
  1. OXCARBAZEPINE [Suspect]
     Indication: EPILEPSY
     Dosage: 600 MG, UNK
  2. OXCARBAZEPINE [Suspect]
     Dosage: 900 MG, PER DAY
  3. OXCARBAZEPINE [Suspect]
     Dosage: 1200 MG, PER DAY

REACTIONS (18)
  - ABNORMAL BEHAVIOUR [None]
  - ANGER [None]
  - CIRCADIAN RHYTHM SLEEP DISORDER [None]
  - COMMUNICATION DISORDER [None]
  - CONVULSION [None]
  - DELUSION OF GRANDEUR [None]
  - GRANDIOSITY [None]
  - HALLUCINATION, AUDITORY [None]
  - INAPPROPRIATE AFFECT [None]
  - INCORRECT DOSE ADMINISTERED [None]
  - INSOMNIA [None]
  - IRRITABILITY [None]
  - MANIA [None]
  - PSYCHOMOTOR HYPERACTIVITY [None]
  - RESTLESSNESS [None]
  - SCHIZOPHRENIA [None]
  - SOLILOQUY [None]
  - SPEECH DISORDER [None]
